FAERS Safety Report 24820075 (Version 2)
Quarter: 2025Q1

REPORT INFORMATION
  Report Type: Spontaneous
  Country: US (occurrence: US)
  Receive Date: 20250108
  Receipt Date: 20250211
  Transmission Date: 20250409
  Serious: No
  Sender: Kenvue
  Company Number: US-KENVUE-20250101958

PATIENT
  Sex: Female

DRUGS (7)
  1. WOMENS ROGAINE UNSCENTED [Suspect]
     Active Substance: MINOXIDIL
     Indication: Alopecia
     Dosage: UNK, ONCE A DAY, 1/2 CAP
     Route: 061
     Dates: start: 202403
  2. WOMENS ROGAINE UNSCENTED [Suspect]
     Active Substance: MINOXIDIL
     Dosage: CAP OF FOAM, ONCE A DAY (ONE APPLICATION AT NIGHT)
     Route: 061
     Dates: start: 20240830, end: 202412
  3. BUPROPION [Concomitant]
     Active Substance: BUPROPION
     Indication: Depression
     Route: 065
  4. Escaprate [Concomitant]
     Indication: Depression
     Route: 065
  5. MAGNESIUM [Concomitant]
     Active Substance: MAGNESIUM
     Indication: Product used for unknown indication
     Route: 065
  6. COLLAGEN [Concomitant]
     Active Substance: COLLAGEN
     Indication: Hair disorder
     Route: 065
  7. COLLAGEN [Concomitant]
     Active Substance: COLLAGEN
     Indication: Nail disorder

REACTIONS (5)
  - Application site irritation [Recovering/Resolving]
  - Application site pruritus [Unknown]
  - Application site pain [Unknown]
  - Application site exfoliation [Unknown]
  - Overdose [Unknown]

NARRATIVE: CASE EVENT DATE: 20240101
